FAERS Safety Report 6086662-4 (Version None)
Quarter: 2009Q1

REPORT INFORMATION
  Report Type: 
  Country: None (occurrence: None)
  Receive Date: 20090223
  Receipt Date: 20090121
  Transmission Date: 20090719
  Serious: No
  Sender: FDA-Public Use
  Company Number: US-BAYER-200840036NA

PATIENT
  Age: 47 Year
  Sex: Female

DRUGS (6)
  1. AVELOX [Suspect]
     Indication: EAR INFECTION
     Dosage: TOTAL DAILY DOSE: 400 MG  UNIT DOSE: 400 MG
  2. PHENTERMINE [Concomitant]
  3. TRIAMTERENE [Concomitant]
  4. VITAMIN D [Concomitant]
  5. ALDACTONE [Concomitant]
     Dosage: TOTAL DAILY DOSE: 200 MG
  6. COFFEE [Concomitant]

REACTIONS (3)
  - ERYTHEMA [None]
  - FEELING HOT [None]
  - FLUSHING [None]
